FAERS Safety Report 15650426 (Version 1)
Quarter: 2018Q4

REPORT INFORMATION
  Report Type: Spontaneous
  Country: JP (occurrence: JP)
  Receive Date: 20181123
  Receipt Date: 20181123
  Transmission Date: 20190205
  Serious: Yes (Other)
  Sender: FDA-Public Use
  Company Number: JP-ORION CORPORATION ORION PHARMA-ENT 2018-0127

PATIENT

DRUGS (7)
  1. COMTAN [Suspect]
     Active Substance: ENTACAPONE
     Indication: PARKINSON^S DISEASE
     Route: 048
  2. COMTAN [Suspect]
     Active Substance: ENTACAPONE
     Route: 048
  3. COMTAN [Suspect]
     Active Substance: ENTACAPONE
     Route: 048
  4. COMTAN [Suspect]
     Active Substance: ENTACAPONE
     Route: 048
  5. ROTIGOTINE [Concomitant]
     Active Substance: ROTIGOTINE
     Route: 065
  6. CARBIDOPA AND LEVODOPA [Concomitant]
     Active Substance: CARBIDOPA\LEVODOPA
     Route: 065
  7. SELEGILINE [Concomitant]
     Active Substance: SELEGILINE
     Route: 065

REACTIONS (5)
  - Therapeutic response shortened [Recovering/Resolving]
  - On and off phenomenon [Unknown]
  - Parkinson^s disease [Recovering/Resolving]
  - Depression [Unknown]
  - Dyskinesia [Unknown]
